FAERS Safety Report 7309347-2 (Version None)
Quarter: 2011Q1

REPORT INFORMATION
  Report Type: 
  Country: None (occurrence: None)
  Receive Date: 20110223
  Receipt Date: 20110220
  Transmission Date: 20110831
  Serious: Yes (Death, Hospitalization, Other)
  Sender: FDA-Public Use
  Company Number: US-AMGEN-USASP2010008199

PATIENT
  Age: 63 Year
  Sex: Male
  Weight: 94 kg

DRUGS (18)
  1. PROCRIT [Suspect]
     Indication: ANAEMIA
     Dosage: UNK
     Dates: start: 20030101, end: 20060708
  2. TRAZODONE HCL [Concomitant]
     Indication: PRODUCT USED FOR UNKNOWN INDICATION
  3. PRIMIDONE [Concomitant]
     Indication: PRODUCT USED FOR UNKNOWN INDICATION
  4. EXJADE [Concomitant]
     Indication: PRODUCT USED FOR UNKNOWN INDICATION
  5. NPLATE [Suspect]
     Indication: IDIOPATHIC THROMBOCYTOPENIC PURPURA
     Dosage: 75 A?G, QWK
     Route: 058
     Dates: start: 20101110, end: 20101201
  6. NEUPOGEN [Suspect]
     Indication: ANAEMIA
     Dosage: UNK
     Dates: start: 20060523, end: 20060708
  7. FLOMAX [Concomitant]
     Indication: PRODUCT USED FOR UNKNOWN INDICATION
     Dosage: UNK
     Dates: end: 20101201
  8. XALATAN [Concomitant]
     Indication: PRODUCT USED FOR UNKNOWN INDICATION
  9. TYLENOL (CAPLET) [Concomitant]
     Indication: MUSCULOSKELETAL PAIN
  10. ENALAPRIL MALEATE [Concomitant]
     Indication: PRODUCT USED FOR UNKNOWN INDICATION
     Dosage: UNK
     Dates: start: 20101201, end: 20101204
  11. OMEPRAZOLE [Concomitant]
     Indication: PRODUCT USED FOR UNKNOWN INDICATION
     Dosage: UNK
     Dates: end: 20101201
  12. DECITABINE [Concomitant]
     Dosage: UNK
     Dates: start: 20070101, end: 20100701
  13. FEXOFENADINE [Concomitant]
     Indication: PRODUCT USED FOR UNKNOWN INDICATION
     Dosage: UNK
     Dates: start: 20101201, end: 20101204
  14. METOPROLOL [Concomitant]
     Indication: PRODUCT USED FOR UNKNOWN INDICATION
     Dosage: UNK
     Dates: end: 20101204
  15. LOVASTATIN [Concomitant]
     Indication: PRODUCT USED FOR UNKNOWN INDICATION
  16. EXTADEN [Concomitant]
     Indication: PRODUCT USED FOR UNKNOWN INDICATION
     Dosage: UNK
     Dates: start: 20060705, end: 20101101
  17. CODEINE [Concomitant]
     Indication: PRODUCT USED FOR UNKNOWN INDICATION
     Dosage: UNK
     Dates: end: 20101204
  18. LORAZEPAM [Concomitant]
     Indication: PRODUCT USED FOR UNKNOWN INDICATION
     Dosage: UNK
     Dates: end: 20101204

REACTIONS (24)
  - MULTI-ORGAN FAILURE [None]
  - SPINAL COLUMN STENOSIS [None]
  - NEPHROLITHIASIS [None]
  - BRONCHITIS [None]
  - ACUTE RESPIRATORY DISTRESS SYNDROME [None]
  - PROSTATITIS [None]
  - CHRONIC MYELOMONOCYTIC LEUKAEMIA [None]
  - DIARRHOEA [None]
  - NIGHT SWEATS [None]
  - MUSCULOSKELETAL PAIN [None]
  - IRON OVERLOAD [None]
  - COUGH [None]
  - ARTHRALGIA [None]
  - CHEST PAIN [None]
  - MYELODYSPLASTIC SYNDROME [None]
  - PLATELET COUNT DECREASED [None]
  - DISSEMINATED INTRAVASCULAR COAGULATION [None]
  - WHITE BLOOD CELL COUNT INCREASED [None]
  - CALCULUS URETERIC [None]
  - INTERVERTEBRAL DISC PROTRUSION [None]
  - CHRONIC OBSTRUCTIVE PULMONARY DISEASE [None]
  - DRUG INEFFECTIVE [None]
  - CATHETER SITE HAEMORRHAGE [None]
  - PULMONARY GRANULOMA [None]
